FAERS Safety Report 20431553 (Version 1)
Quarter: 2022Q1

REPORT INFORMATION
  Report Type: Spontaneous
  Country: US (occurrence: US)
  Receive Date: 20220204
  Receipt Date: 20220204
  Transmission Date: 20220423
  Serious: Yes (Other)
  Sender: FDA-Public Use
  Company Number: US-PFIZER INC-202101217432

PATIENT
  Age: 87 Year

DRUGS (2)
  1. VYNDAMAX [Suspect]
     Active Substance: TAFAMIDIS
     Dosage: 61 MG
     Dates: start: 20210914, end: 20220105
  2. VYNDAMAX [Suspect]
     Active Substance: TAFAMIDIS
     Dosage: 61 MG
     Dates: start: 20220110

REACTIONS (6)
  - Choking [Recovering/Resolving]
  - Dry eye [Recovered/Resolved]
  - Eyelid oedema [Recovered/Resolved]
  - Eye pruritus [Recovered/Resolved]
  - Oesophageal irritation [Recovering/Resolving]
  - Dysphagia [Recovering/Resolving]

NARRATIVE: CASE EVENT DATE: 20210914
